FAERS Safety Report 4978390-0 (Version None)
Quarter: 2006Q2

REPORT INFORMATION
  Report Type: 
  Country: None (occurrence: None)
  Receive Date: 20060414
  Receipt Date: 20060407
  Transmission Date: 20061013
  Serious: Yes (Hospitalization)
  Sender: FDA-Public Use
  Company Number: FRP06000395

PATIENT
  Age: 85 Year
  Sex: Male

DRUGS (5)
  1. ACTONEL [Suspect]
     Dosage: 35 MG, 1 /WEEK, ORAL
     Route: 048
  2. PREDNISONE TAB [Suspect]
     Dosage: 5 MG, DAILY, ORAL
     Route: 048
     Dates: start: 19970101
  3. ACETAMINOPHEN W/ PROPOXYPHENE HCL [Suspect]
     Dosage: ORAL
     Route: 048
  4. METHOTREXATE [Suspect]
     Indication: RHEUMATOID ARTHRITIS
     Dosage: 1.5 MG, DAILY, ORAL
     Route: 048
     Dates: start: 19960101, end: 20051208
  5. INIPOMP (PANTOPRAZOLE) [Suspect]
     Dosage: 20 MG, DAILY, ORAL
     Route: 048

REACTIONS (3)
  - ANAEMIA MACROCYTIC [None]
  - INFLAMMATION [None]
  - MYELODYSPLASTIC SYNDROME [None]
